FAERS Safety Report 7788183-7 (Version None)
Quarter: 2011Q3

REPORT INFORMATION
  Report Type: 
  Country: None (occurrence: None)
  Receive Date: 20110930
  Receipt Date: 20110921
  Transmission Date: 20111222
  Serious: Yes (Hospitalization)
  Sender: FDA-Public Use
  Company Number: JP-JNJFOC-20091207478

PATIENT
  Sex: Male
  Weight: 60 kg

DRUGS (20)
  1. GOLIMUMAB [Suspect]
     Route: 058
     Dates: start: 20090612
  2. MOHRUS TAPE [Concomitant]
     Indication: RHEUMATOID ARTHRITIS
     Route: 062
  3. GOLIMUMAB [Suspect]
     Route: 058
     Dates: start: 20091222
  4. DICLOFENAC SODIUM [Concomitant]
     Indication: RHEUMATOID ARTHRITIS
     Route: 048
     Dates: start: 20090219
  5. PREDNISOLONE [Concomitant]
     Indication: RHEUMATOID ARTHRITIS
     Route: 048
     Dates: start: 20090831, end: 20090928
  6. GOLIMUMAB [Suspect]
     Indication: RHEUMATOID ARTHRITIS
     Route: 058
     Dates: start: 20090803
  7. GOLIMUMAB [Suspect]
     Route: 058
     Dates: start: 20091027
  8. GOLIMUMAB [Suspect]
     Route: 058
     Dates: start: 20090831
  9. GOLIMUMAB [Suspect]
     Route: 058
     Dates: start: 20090515
  10. GOLIMUMAB [Suspect]
     Route: 058
     Dates: start: 20090417
  11. LAXOBERON [Concomitant]
     Indication: CONSTIPATION
     Route: 048
     Dates: start: 20090724
  12. ALENDRONATE SODIUM [Concomitant]
     Indication: OSTEOPOROSIS PROPHYLAXIS
     Route: 048
     Dates: start: 20101204
  13. PREDNISOLONE [Concomitant]
     Route: 048
     Dates: start: 20090928
  14. GOLIMUMAB [Suspect]
     Route: 058
     Dates: start: 20110929
  15. GOLIMUMAB [Suspect]
     Route: 058
     Dates: start: 20090710
  16. ALENDRONATE SODIUM [Concomitant]
     Route: 048
     Dates: end: 20091120
  17. GOLIMUMAB [Suspect]
     Route: 058
     Dates: start: 20091124
  18. KETOPROFEN [Concomitant]
     Indication: RHEUMATOID ARTHRITIS
     Route: 062
     Dates: start: 20100908
  19. RABEPRAZOLE SODIUM [Concomitant]
     Indication: PROPHYLAXIS AGAINST GASTROINTESTINAL ULCER
     Route: 048
  20. PURSENNID [Concomitant]
     Indication: CONSTIPATION
     Route: 048
     Dates: start: 20090612

REACTIONS (1)
  - PULPITIS DENTAL [None]
